FAERS Safety Report 10043949 (Version 2)
Quarter: 2014Q1

REPORT INFORMATION
  Report Type: Spontaneous
  Country: US (occurrence: US)
  Receive Date: 20140328
  Receipt Date: 20140328
  Transmission Date: 20141002
  Serious: No
  Sender: FDA-Public Use
  Company Number: US-MYLANLABS-2013S1010342

PATIENT
  Age: 54 Year
  Sex: Female

DRUGS (5)
  1. EMSAM (SELEGILINE TRANSDERMAL SYSTEM) [Suspect]
     Indication: DEPRESSION
     Dosage: Q24H
     Route: 062
     Dates: start: 20130508
  2. ABILIFY [Concomitant]
     Indication: DEPRESSION
     Route: 048
  3. BENZATROPINE [Concomitant]
     Route: 048
  4. LITHIUM [Concomitant]
     Indication: DEPRESSION
     Route: 048
  5. LORAZEPAM [Concomitant]
     Indication: ANXIETY
     Route: 048

REACTIONS (1)
  - Restless legs syndrome [Not Recovered/Not Resolved]
